FAERS Safety Report 15954859 (Version 3)
Quarter: 2019Q2

REPORT INFORMATION
  Report Type: Report from Study
  Country: US (occurrence: US)
  Receive Date: 20190213
  Receipt Date: 20190624
  Transmission Date: 20190711
  Serious: Yes (Other)
  Sender: FDA-Public Use
  Company Number: US-ROCHE-2258369

PATIENT
  Age: 29 Year
  Sex: Male
  Weight: 83.99 kg

DRUGS (2)
  1. OCREVUS [Suspect]
     Active Substance: OCRELIZUMAB
     Indication: MULTIPLE SCLEROSIS
     Dosage: FULL DOSE RECEIVED IN 07/MAR/2019
     Route: 042
     Dates: start: 20180827
  2. AMPYRA [Concomitant]
     Active Substance: DALFAMPRIDINE
     Dosage: ONGOING:YES
     Route: 065

REACTIONS (8)
  - Multiple sclerosis relapse [Recovered/Resolved]
  - Sinusitis [Not Recovered/Not Resolved]
  - Therapeutic response shortened [Unknown]
  - Malaise [Recovered/Resolved]
  - Upper respiratory tract infection [Recovered/Resolved]
  - Fall [Unknown]
  - Dizziness [Recovered/Resolved]
  - Pyrexia [Recovered/Resolved]

NARRATIVE: CASE EVENT DATE: 20190119
